FAERS Safety Report 18937724 (Version 1)
Quarter: 2021Q1

REPORT INFORMATION
  Report Type: Spontaneous
  Country: EG (occurrence: EG)
  Receive Date: 20210224
  Receipt Date: 20210224
  Transmission Date: 20210420
  Serious: Yes (Other)
  Sender: FDA-Public Use
  Company Number: EG-ELI_LILLY_AND_COMPANY-EG202102007236

PATIENT
  Age: 59 Year
  Sex: Female

DRUGS (1)
  1. GEMZAR [Suspect]
     Active Substance: GEMCITABINE HYDROCHLORIDE
     Indication: MALIGNANT PERITONEAL NEOPLASM
     Dosage: 2 G, CYCLICAL (Q3W)
     Route: 065
     Dates: start: 202010

REACTIONS (3)
  - Hypoaesthesia [Unknown]
  - Platelet count decreased [Unknown]
  - Diarrhoea [Unknown]

NARRATIVE: CASE EVENT DATE: 202011
